FAERS Safety Report 8917577 (Version 2)
Quarter: 2012Q4

REPORT INFORMATION
  Report Type: 
  Country: US (occurrence: US)
  Receive Date: 20121119
  Receipt Date: 20121227
  Transmission Date: 20130627
  Serious: No
  Sender: FDA-Public Use
  Company Number: US-009507513-1211USA004436

PATIENT
  Sex: Male
  Weight: 79.37 kg

DRUGS (3)
  1. VICTRELIS [Suspect]
     Indication: HEPATITIS C
     Dosage: UNK
     Route: 048
  2. PEGASYS [Suspect]
  3. RIBAPAK [Suspect]

REACTIONS (9)
  - White blood cell count abnormal [Unknown]
  - Arthralgia [Unknown]
  - Pruritus [Not Recovered/Not Resolved]
  - Platelet count decreased [Unknown]
  - Myalgia [Unknown]
  - Insomnia [Unknown]
  - Irritability [Unknown]
  - Pain in extremity [Not Recovered/Not Resolved]
  - Pain [Unknown]
